FAERS Safety Report 9677897 (Version 1)
Quarter: 2013Q4

REPORT INFORMATION
  Report Type: Spontaneous
  Country: US (occurrence: US)
  Receive Date: 20131108
  Receipt Date: 20131108
  Transmission Date: 20140711
  Serious: No
  Sender: FDA-Public Use
  Company Number: US-PFIZER INC-2013315961

PATIENT
  Age: 60 Year
  Sex: Male
  Weight: 68 kg

DRUGS (2)
  1. LIPITOR [Suspect]
     Indication: BLOOD CHOLESTEROL INCREASED
     Dosage: 10 MG, 1X/DAY
     Route: 048
  2. ATORVASTATIN CALCIUM [Suspect]
     Indication: BLOOD CHOLESTEROL INCREASED
     Dosage: 10 MG, 1X/DAY
     Route: 048
     Dates: start: 2012, end: 2012

REACTIONS (3)
  - Glucose tolerance impaired [Unknown]
  - Oropharyngeal pain [Recovered/Resolved]
  - Gastrooesophageal reflux disease [Recovered/Resolved]
